FAERS Safety Report 23173099 (Version 2)
Quarter: 2024Q3

REPORT INFORMATION
  Report Type: Spontaneous
  Country: US (occurrence: US)
  Receive Date: 20231111
  Receipt Date: 20240930
  Transmission Date: 20241016
  Serious: No
  Sender: SANOFI AVENTIS
  Company Number: US-SA-SAC20231106000456

PATIENT
  Age: 7 Year
  Sex: Male
  Weight: 27.27 kg

DRUGS (2)
  1. DUPIXENT [Suspect]
     Active Substance: DUPILUMAB
     Indication: Dermatitis atopic
     Dosage: 300 MG, Q4W
     Route: 058
     Dates: start: 202302
  2. DUPIXENT [Suspect]
     Active Substance: DUPILUMAB
     Indication: Dermatitis atopic
     Dosage: 300 MG, QM
     Route: 058
     Dates: start: 202207

REACTIONS (9)
  - Chalazion [Unknown]
  - Hordeolum [Unknown]
  - Dacryostenosis acquired [Unknown]
  - Inflammation of lacrimal passage [Unknown]
  - Anxiety [Unknown]
  - Dental plaque [Unknown]
  - Eczema [Unknown]
  - Injection site pain [Unknown]
  - Oral herpes [Unknown]

NARRATIVE: CASE EVENT DATE: 20230101
